FAERS Safety Report 10779185 (Version 1)
Quarter: 2015Q1

REPORT INFORMATION
  Report Type: Spontaneous
  Country: US (occurrence: None)
  Receive Date: 20150206
  Receipt Date: 20150206
  Transmission Date: 20150721
  Serious: No
  Sender: FDA-Public Use
  Company Number: None

PATIENT

DRUGS (2)
  1. DEXTROMETHORPHAN 100MG/10MG [Suspect]
     Active Substance: DEXTROMETHORPHAN
  2. ROBITUSSIN (GUAIFENESIN) [Suspect]
     Active Substance: GUAIFENESIN

REACTIONS (2)
  - Circumstance or information capable of leading to medication error [None]
  - Drug dispensing error [None]
